FAERS Safety Report 5280099-3 (Version None)
Quarter: 2007Q1

REPORT INFORMATION
  Report Type: 
  Country: None (occurrence: None)
  Receive Date: 20070322
  Receipt Date: 20070309
  Transmission Date: 20070707
  Serious: Yes (Other)
  Sender: FDA-Public Use
  Company Number: 153950ISR

PATIENT
  Sex: Male

DRUGS (2)
  1. AZITHROMYCIN [Suspect]
     Dosage: ?? (1 GRAM) ORAL
     Route: 048
     Dates: start: 20070208, end: 20070208
  2. CEFIXIME CHEWABLE [Suspect]
     Dosage: ?? (400 MG) ORAL
     Route: 048
     Dates: start: 20070207, end: 20070207

REACTIONS (6)
  - DIARRHOEA [None]
  - GASTROINTESTINAL DISORDER [None]
  - PHARYNGOLARYNGEAL PAIN [None]
  - PRODUCTIVE COUGH [None]
  - SWELLING FACE [None]
  - VOMITING [None]
